FAERS Safety Report 8845730 (Version 1)
Quarter: 2012Q4

REPORT INFORMATION
  Report Type: 
  Country: DE (occurrence: DE)
  Receive Date: 20121017
  Receipt Date: 20121017
  Transmission Date: 20130627
  Serious: Yes (Hospitalization, Congenital Anomaly, Other)
  Sender: FDA-Public Use
  Company Number: DE-ABBOTT-12P-062-0995176-00

PATIENT
  Sex: Male

DRUGS (1)
  1. ERGENYL [Suspect]
     Indication: MATERNAL EXPOSURE TIMING UNSPECIFIED
     Route: 064

REACTIONS (8)
  - Small for dates baby [Unknown]
  - Facial asymmetry [Not Recovered/Not Resolved]
  - Temperature regulation disorder [Recovered/Resolved]
  - Cryptorchism [Unknown]
  - Hypotonia neonatal [Not Recovered/Not Resolved]
  - Foot deformity [Unknown]
  - Foetal exposure during pregnancy [Unknown]
  - Deformity [Unknown]
